FAERS Safety Report 6310391-2 (Version None)
Quarter: 2009Q3

REPORT INFORMATION
  Report Type: 
  Country: None (occurrence: None)
  Receive Date: 20090814
  Receipt Date: 20090805
  Transmission Date: 20100115
  Serious: Yes (Hospitalization)
  Sender: FDA-Public Use
  Company Number: US-JNJFOC-20090802166

PATIENT
  Age: 9 Year
  Sex: Female
  Weight: 12.47 kg

DRUGS (7)
  1. REMICADE [Suspect]
     Route: 042
  2. REMICADE [Suspect]
     Indication: JUVENILE ARTHRITIS
     Dosage: 2 INFUSIONS ON UNSPECIFIED DATES
     Route: 042
  3. METHOTREXATE [Concomitant]
  4. PREDNISONE [Concomitant]
  5. TYLENOL (CAPLET) [Concomitant]
     Indication: PREMEDICATION
  6. BENADRYL [Concomitant]
     Indication: PREMEDICATION
  7. SOLU-MEDROL [Concomitant]
     Indication: PREMEDICATION

REACTIONS (1)
  - ANAPHYLACTIC SHOCK [None]
